FAERS Safety Report 7326949-8 (Version None)
Quarter: 2011Q1

REPORT INFORMATION
  Report Type: 
  Country: None (occurrence: None)
  Receive Date: 20110302
  Receipt Date: 20110225
  Transmission Date: 20110831
  Serious: Yes (Other)
  Sender: FDA-Public Use
  Company Number: US-PFIZER INC-2011025670

PATIENT
  Age: 52 Year
  Sex: Male
  Weight: 95.238 kg

DRUGS (7)
  1. CITALOPRAM [Interacting]
     Indication: GRAND MAL CONVULSION
  2. ZOLAM [Interacting]
  3. FIBRE, DIETARY [Interacting]
     Indication: CONSTIPATION
     Dosage: 2 TEASPOONS 2X/DAY
     Dates: start: 20100101, end: 20110110
  4. PHENOBARBITAL [Interacting]
  5. PHENYTOIN [Interacting]
     Dosage: UNK
  6. VICODIN [Concomitant]
  7. PHENYTOIN [Suspect]
     Indication: GRAND MAL CONVULSION
     Dosage: UNK
     Route: 048
     Dates: start: 20100101

REACTIONS (7)
  - DIZZINESS [None]
  - SOMNOLENCE [None]
  - ASTHENIA [None]
  - DEPRESSED LEVEL OF CONSCIOUSNESS [None]
  - EPILEPTIC AURA [None]
  - LETHARGY [None]
  - INHIBITORY DRUG INTERACTION [None]
